FAERS Safety Report 7291460-X (Version None)
Quarter: 2011Q1

REPORT INFORMATION
  Report Type: 
  Country: None (occurrence: None)
  Receive Date: 20110201
  Receipt Date: 20110118
  Transmission Date: 20110831
  Serious: Yes (Other)
  Sender: FDA-Public Use
  Company Number: DSM-2011-00049

PATIENT
  Age: 48 Year
  Sex: Male
  Weight: 80 kg

DRUGS (2)
  1. SEVIKAR (OLMESARTAN MEDOXOMIL, AMLODIPINE BESILATE) (TABLET) (OLMESART [Suspect]
     Indication: HYPERTENSION
     Dosage: 20/5 MG (1 IN 1 D), ORAL
     Route: 048
     Dates: start: 20101119, end: 20101209
  2. HYPOLOC (NEBIVOLOL HYDROCHLORIDE) (5 MILLIGRAM, TABLET) (NEBIVOLOL HYD [Suspect]
     Indication: HYPERTENSION
     Dosage: 2.5 MG, (2.5 MG, 1 IN 1 D), ORAL
     Route: 048
     Dates: start: 20101129, end: 20101203

REACTIONS (2)
  - LICHENOID KERATOSIS [None]
  - NEUTROPHIL COUNT INCREASED [None]
